FAERS Safety Report 23975634 (Version 1)
Quarter: 2024Q2

REPORT INFORMATION
  Report Type: Spontaneous
  Country: US (occurrence: US)
  Receive Date: 20240614
  Receipt Date: 20240614
  Transmission Date: 20240716
  Serious: No
  Sender: FDA-Public Use
  Company Number: US-ALVOGEN-2024094685

PATIENT
  Sex: Male

DRUGS (1)
  1. LISDEXAMFETAMINE [Suspect]
     Active Substance: LISDEXAMFETAMINE
     Indication: Attention deficit hyperactivity disorder
     Dosage: ALV AND 564?EXPIRATION DATE: 09-MAY-2025?START DATE: FOR THE LAST 6 MONTHS
     Route: 048
     Dates: start: 202312

REACTIONS (2)
  - Product physical issue [Unknown]
  - Product size issue [Unknown]
